FAERS Safety Report 10302702 (Version 1)
Quarter: 2014Q3

REPORT INFORMATION
  Report Type: Spontaneous
  Country: US (occurrence: None)
  Receive Date: 20140711
  Receipt Date: 20140711
  Transmission Date: 20150326
  Serious: Yes (Hospitalization)
  Sender: FDA-Public Use
  Company Number: None

PATIENT
  Age: 64 Year
  Sex: Male
  Weight: 138 kg

DRUGS (1)
  1. VALPROIC ACID. [Suspect]
     Active Substance: VALPROIC ACID
     Indication: SCHIZOAFFECTIVE DISORDER
     Route: 048
     Dates: start: 20140404, end: 20140506

REACTIONS (8)
  - Confusional state [None]
  - Tremor [None]
  - Asthenia [None]
  - Gait disturbance [None]
  - Functional gastrointestinal disorder [None]
  - Sedation [None]
  - Syncope [None]
  - Bladder dysfunction [None]

NARRATIVE: CASE EVENT DATE: 20140506
